FAERS Safety Report 12083961 (Version 2)
Quarter: 2016Q1

REPORT INFORMATION
  Report Type: Spontaneous
  Country: JP (occurrence: JP)
  Receive Date: 20160217
  Receipt Date: 20160303
  Transmission Date: 20160526
  Serious: Yes (Death, Other)
  Sender: FDA-Public Use
  Company Number: JP-PFIZER INC-2015406901

PATIENT
  Age: 84 Year
  Sex: Male
  Weight: 39.5 kg

DRUGS (10)
  1. FINIBAX [Concomitant]
     Active Substance: DORIPENEM MONOHYDRATE
     Dosage: 0.25 G, 2X/DAY
     Route: 041
     Dates: start: 20151121, end: 20151124
  2. DENOSINE /00784201/ [Concomitant]
     Active Substance: GANCICLOVIR
     Dosage: 25 MG/KG, 1X/DAY
     Route: 041
     Dates: start: 20151128, end: 20151129
  3. SEKIJUJI ALBUMI [Concomitant]
     Dosage: UNK
     Dates: start: 20151117, end: 20151121
  4. RED BLOOD CELLS [Concomitant]
     Active Substance: HUMAN RED BLOOD CELL
     Dosage: UNK
     Dates: start: 20151117, end: 20151117
  5. CANSIDAS [Concomitant]
     Dosage: 70 MG, 1X/DAY
     Route: 041
     Dates: start: 20151015, end: 20151015
  6. CANSIDAS [Concomitant]
     Dosage: 50 MG, 1X/DAY
     Route: 041
     Dates: start: 20151016, end: 20151116
  7. MEROPENEM. [Concomitant]
     Active Substance: MEROPENEM
     Dosage: 0.5 DF, 1X/DAY
     Route: 041
     Dates: start: 20151125, end: 20151129
  8. FINIBAX [Concomitant]
     Active Substance: DORIPENEM MONOHYDRATE
     Dosage: 0.25 G, 3X/DAY
     Route: 041
     Dates: start: 20151118, end: 20151120
  9. VFEND [Suspect]
     Active Substance: VORICONAZOLE
     Indication: BRONCHOPULMONARY ASPERGILLOSIS
     Dosage: 140 MG, 2X/DAY
     Route: 042
     Dates: start: 20151115, end: 20151120
  10. SEKIJUJI ALBUMI [Concomitant]
     Dosage: UNK
     Dates: start: 20151109, end: 20151114

REACTIONS (3)
  - Condition aggravated [Fatal]
  - Renal impairment [Unknown]
  - Pneumonia [Fatal]

NARRATIVE: CASE EVENT DATE: 201511
